FAERS Safety Report 9051800 (Version 1)
Quarter: 2013Q1

REPORT INFORMATION
  Report Type: Spontaneous
  Country: US (occurrence: US)
  Receive Date: 20130207
  Receipt Date: 20130207
  Transmission Date: 20140127
  Serious: No
  Sender: FDA-Public Use
  Company Number: US-BIOGENIDEC-2013BI010278

PATIENT
  Sex: Male

DRUGS (4)
  1. AVONEX [Suspect]
     Indication: MULTIPLE SCLEROSIS
     Route: 030
     Dates: start: 2009, end: 2012
  2. AVONEX [Suspect]
     Indication: MULTIPLE SCLEROSIS
     Route: 030
     Dates: start: 2012
  3. NAPROSYN [Concomitant]
     Indication: PREMEDICATION
     Dates: start: 2012
  4. BACLOFEN [Concomitant]
     Indication: PREMEDICATION
     Dates: start: 2012

REACTIONS (2)
  - Back pain [Recovered/Resolved]
  - Influenza like illness [Recovered/Resolved]
